FAERS Safety Report 25388810 (Version 1)
Quarter: 2025Q2

REPORT INFORMATION
  Report Type: Spontaneous
  Country: US (occurrence: US)
  Receive Date: 20250603
  Receipt Date: 20250603
  Transmission Date: 20250716
  Serious: No
  Sender: ABBVIE
  Company Number: US-ABBVIE-6307809

PATIENT
  Sex: Male

DRUGS (1)
  1. MAVYRET [Suspect]
     Active Substance: GLECAPREVIR\PIBRENTASVIR
     Indication: Chronic hepatitis C
     Route: 048

REACTIONS (6)
  - Discomfort [Unknown]
  - Anorectal discomfort [Unknown]
  - Pruritus [Unknown]
  - Gastrointestinal pain [Unknown]
  - Pain of skin [Unknown]
  - Musculoskeletal pain [Unknown]
